FAERS Safety Report 16797873 (Version 2)
Quarter: 2020Q1

REPORT INFORMATION
  Report Type: Spontaneous
  Country: IT (occurrence: IT)
  Receive Date: 20190912
  Receipt Date: 20200213
  Transmission Date: 20200409
  Serious: Yes (Hospitalization, Other)
  Sender: FDA-Public Use
  Company Number: IT-VIIV HEALTHCARE LIMITED-IT2019163396

PATIENT
  Age: 43 Year
  Sex: Male

DRUGS (1)
  1. TRIUMEQ [Suspect]
     Active Substance: ABACAVIR SULFATE\DOLUTEGRAVIR SODIUM\LAMIVUDINE
     Indication: PRODUCT USED FOR UNKNOWN INDICATION
     Dosage: 50 MG, UNK
     Dates: start: 20190807

REACTIONS (9)
  - Acute kidney injury [Recovered/Resolved]
  - Hypovolaemic shock [Unknown]
  - Pyrexia [Unknown]
  - Pallor [Unknown]
  - Hypertransaminasaemia [Unknown]
  - Diarrhoea [Recovered/Resolved]
  - Rhabdomyolysis [Unknown]
  - Oliguria [Unknown]
  - Hypotension [Recovering/Resolving]

NARRATIVE: CASE EVENT DATE: 20190822
